FAERS Safety Report 7403688-6 (Version None)
Quarter: 2011Q2

REPORT INFORMATION
  Report Type: 
  Country: None (occurrence: None)
  Receive Date: 20110408
  Receipt Date: 20110404
  Transmission Date: 20111010
  Serious: Yes (Death, Other)
  Sender: FDA-Public Use
  Company Number: PHHY2011US28183

PATIENT
  Sex: Female

DRUGS (1)
  1. METHIMAZOLE [Suspect]
     Indication: BASEDOW'S DISEASE
     Dosage: UNK UKN, UNK
     Route: 064

REACTIONS (10)
  - GALLBLADDER DISORDER [None]
  - ALTERED STATE OF CONSCIOUSNESS [None]
  - SUDDEN INFANT DEATH SYNDROME [None]
  - DYSMORPHISM [None]
  - PHYSICAL BREAST EXAMINATION ABNORMAL [None]
  - SYNDACTYLY [None]
  - DRUG EXPOSURE DURING PREGNANCY [None]
  - APLASIA CUTIS CONGENITA [None]
  - CLINODACTYLY [None]
  - FEEDING DISORDER NEONATAL [None]
